FAERS Safety Report 21209878 (Version 1)
Quarter: 2022Q3

REPORT INFORMATION
  Report Type: Report from Study
  Country: CR (occurrence: CR)
  Receive Date: 20220813
  Receipt Date: 20220813
  Transmission Date: 20221027
  Serious: Yes (Life-Threatening, Other)
  Sender: FDA-Public Use
  Company Number: CR-NOVARTISPH-NVSC2022CR183501

PATIENT
  Age: 69 Year
  Sex: Male

DRUGS (3)
  1. EXFORGE [Suspect]
     Active Substance: AMLODIPINE BESYLATE\VALSARTAN
     Indication: Product used for unknown indication
     Dosage: UNK (5/160 MG)
     Route: 065
  2. SACUBITRIL\VALSARTAN [Suspect]
     Active Substance: SACUBITRIL\VALSARTAN
     Indication: Hypertension
     Dosage: 50 MG (START DATE: APPROXIMATELY 4 YEARS AGO, STOP DATE: APPROXIMATELY 3 YEARS AND 6 MONTHS)
     Route: 065
  3. SACUBITRIL\VALSARTAN [Suspect]
     Active Substance: SACUBITRIL\VALSARTAN
     Dosage: 100 MG (START DATE: APPROXIMATELY 3 YEARS AND 6 MONTHS)
     Route: 065

REACTIONS (6)
  - Hypertension [Unknown]
  - Deafness [Unknown]
  - Arrhythmia [Unknown]
  - Cardiac disorder [Unknown]
  - Product use in unapproved indication [Unknown]
  - Contraindicated product administered [Unknown]
